FAERS Safety Report 19589571 (Version 3)
Quarter: 2021Q3

REPORT INFORMATION
  Report Type: Spontaneous
  Country: CA (occurrence: CA)
  Receive Date: 20210721
  Receipt Date: 20210806
  Transmission Date: 20211014
  Serious: No
  Sender: FDA-Public Use
  Company Number: CA-APOTEX-2021AP020474

PATIENT
  Age: 61 Year
  Sex: Male

DRUGS (5)
  1. CLONAZEPAM. [Concomitant]
     Active Substance: CLONAZEPAM
     Indication: COELIAC DISEASE
     Dosage: 0.5 MILLIGRAM, TID
     Route: 048
     Dates: start: 201909, end: 202009
  2. MYCOPHENOLATE SODIUM [Suspect]
     Active Substance: MYCOPHENOLATE SODIUM
     Indication: COELIAC DISEASE
     Dosage: 360 MILLIGRAM, BID FOR 1.5 WEEKS IN APR?2019
     Route: 048
  3. LEVETIRACETAM. [Concomitant]
     Active Substance: LEVETIRACETAM
     Indication: COELIAC DISEASE
     Dosage: 1500 MILLIGRAM, BID
     Route: 048
     Dates: start: 2018
  4. MYCOPHENOLATE SODIUM [Suspect]
     Active Substance: MYCOPHENOLATE SODIUM
     Dosage: 360 MILLIGRAM, BID
     Route: 048
     Dates: start: 201907, end: 201911
  5. VALPROIC ACID. [Concomitant]
     Active Substance: VALPROIC ACID
     Indication: COELIAC DISEASE
     Dosage: 500 MILLIGRAM, BID
     Route: 048
     Dates: start: 2018

REACTIONS (4)
  - Treatment noncompliance [Unknown]
  - Drug ineffective [Unknown]
  - Condition aggravated [Recovered/Resolved]
  - Myoclonus [Recovered/Resolved]

NARRATIVE: CASE EVENT DATE: 201904
